FAERS Safety Report 21933364 (Version 1)
Quarter: 2023Q1

REPORT INFORMATION
  Report Type: Spontaneous
  Country: US (occurrence: US)
  Receive Date: 20230131
  Receipt Date: 20230131
  Transmission Date: 20230418
  Serious: No
  Sender: FDA-Public Use
  Company Number: US-BAUSCHBL-2023BNL000717

PATIENT
  Sex: Male

DRUGS (1)
  1. LEVOBUNOLOL HYDROCHLORIDE [Suspect]
     Active Substance: LEVOBUNOLOL HYDROCHLORIDE
     Indication: Product used for unknown indication
     Route: 065

REACTIONS (2)
  - Discomfort [Unknown]
  - Expired product administered [Unknown]
